FAERS Safety Report 13718814 (Version 1)
Quarter: 2017Q3

REPORT INFORMATION
  Report Type: Spontaneous
  Country: US (occurrence: US)
  Receive Date: 20170705
  Receipt Date: 20170705
  Transmission Date: 20171127
  Serious: Yes (Other)
  Sender: FDA-Public Use
  Company Number: US-JNJFOC-20170628545

PATIENT
  Age: 76 Year
  Sex: Male

DRUGS (2)
  1. HEPARIN [Interacting]
     Active Substance: HEPARIN SODIUM
     Indication: PRODUCT USED FOR UNKNOWN INDICATION
     Route: 065
  2. RIVAROXABAN [Suspect]
     Active Substance: RIVAROXABAN
     Indication: PULMONARY EMBOLISM
     Route: 048

REACTIONS (4)
  - Dyspnoea [Unknown]
  - Lower gastrointestinal haemorrhage [Unknown]
  - Off label use [Unknown]
  - Labelled drug-drug interaction medication error [Unknown]
